FAERS Safety Report 17625565 (Version 1)
Quarter: 2020Q2

REPORT INFORMATION
  Report Type: Spontaneous
  Country: US (occurrence: US)
  Receive Date: 20200404
  Receipt Date: 20200404
  Transmission Date: 20200713
  Serious: No
  Sender: FDA-Public Use
  Company Number: US-ASTRAZENECA-2020SE38694

PATIENT
  Age: 18749 Day
  Sex: Female
  Weight: 88.5 kg

DRUGS (2)
  1. BYDUREON [Suspect]
     Active Substance: EXENATIDE
     Indication: POLYCYSTIC OVARIES
     Route: 058
  2. BYDUREON BCISE [Suspect]
     Active Substance: EXENATIDE
     Indication: POLYCYSTIC OVARIES
     Route: 058
     Dates: start: 201912

REACTIONS (7)
  - Visual impairment [Not Recovered/Not Resolved]
  - Incorrect dose administered by device [Unknown]
  - Product use in unapproved indication [Not Recovered/Not Resolved]
  - Wrong technique in device usage process [Unknown]
  - Needle issue [Unknown]
  - Intentional product misuse [Unknown]
  - Insurance issue [Unknown]

NARRATIVE: CASE EVENT DATE: 202003
